FAERS Safety Report 7941121-6 (Version None)
Quarter: 2011Q4

REPORT INFORMATION
  Report Type: 
  Country: None (occurrence: None)
  Receive Date: 20111122
  Receipt Date: 20111115
  Transmission Date: 20120403
  Serious: Yes (Other)
  Sender: FDA-Public Use
  Company Number: 2011S1001585

PATIENT
  Age: 56 Year
  Sex: Female

DRUGS (4)
  1. BASEN (VOGLIBOSE) [Suspect]
     Indication: DIABETES MELLITUS
     Dosage: 0.9 MG, TID, PO
     Route: 048
     Dates: start: 20090206, end: 20110928
  2. LIVALO [Suspect]
     Indication: HYPERCHOLESTEROLAEMIA
     Dosage: 1 MG, 1X, PO
     Route: 048
     Dates: start: 20091014, end: 20110928
  3. AMARYL [Suspect]
     Indication: DIABETES MELLITUS
     Dosage: 2 MG, BID, PO
     Route: 048
     Dates: start: 20090206
  4. BOFUTSUSHOSAN (BOFUTSUSHOSAN) [Suspect]
     Indication: CONSTIPATION
     Dosage: 7.5 MG, TID, PO
     Route: 048
     Dates: start: 20100623, end: 20110928

REACTIONS (3)
  - CONCOMITANT DISEASE AGGRAVATED [None]
  - HEPATIC STEATOSIS [None]
  - HEPATIC FUNCTION ABNORMAL [None]
